FAERS Safety Report 8785580 (Version 1)
Quarter: 2012Q4

REPORT INFORMATION
  Report Type: Spontaneous
  Country: JP (occurrence: None)
  Receive Date: 20120831
  Receipt Date: 20120831
  Transmission Date: 20130627
  Serious: Yes (Other)
  Sender: FDA-Public Use
  Company Number: 2010JP004460

PATIENT
  Sex: Male
  Weight: 52 kg

DRUGS (27)
  1. TACROLIMUS [Suspect]
     Route: 048
     Dates: start: 20100626, end: 20100706
  2. TACROLIMUS [Suspect]
     Route: 048
     Dates: start: 20100622, end: 20100626
  3. TACROLIMUS [Suspect]
     Route: 048
     Dates: start: 20100706, end: 20100708
  4. TACROLIMUS [Suspect]
     Route: 048
     Dates: start: 20100708, end: 20100712
  5. TACROLIMUS [Suspect]
     Route: 048
     Dates: start: 20100712, end: 20100715
  6. PREDONINE [Suspect]
     Dates: start: 20100611, end: 20100616
  7. PREDONINE [Suspect]
     Dates: start: 20100618, end: 20100621
  8. PREDONINE [Suspect]
     Dates: start: 20100621, end: 20100624
  9. PREDONINE [Suspect]
  10. PREDONINE [Suspect]
  11. PREDONINE [Suspect]
  12. PREDONINE [Suspect]
     Route: 048
     Dates: start: 20100616, end: 20100618
  13. PREDONINE [Suspect]
     Route: 048
     Dates: start: 20100624, end: 20100629
  14. PREDONINE [Suspect]
     Route: 048
     Dates: start: 20100629, end: 20100713
  15. PREDONINE [Suspect]
     Route: 048
     Dates: start: 20100713
  16. OMEPRAL (OMEPRAZOLE) [Concomitant]
  17. BAKTAR (SULFAMETHOXAZOLE, TRIMETHOPRIM) TABLET [Concomitant]
  18. PENTASA (MESALAZINE) [Concomitant]
  19. PREDONEMA (PREDNISOLONE SODIUM PHOSPHATE) ENEMA [Concomitant]
  20. ADONA (CARBAZOCHROME SODIUM SULFONATE) INJECTION [Concomitant]
  21. TRANSAMIN (TRANEXAMIC ACID) INJECTION [Concomitant]
  22. FLUMARIN (FLOMOXEF SODIUM) INJECTION [Concomitant]
  23. MEROPEN (MEROPENEM TRIHYDRATE) INJECTION [Concomitant]
  24. DENOSINE (GANCICLOVIR) INJECTION [Concomitant]
  25. GASTER [Concomitant]
  26. BIOFERMIN R (STREPTOCOCCUS FAECALIS) [Concomitant]
  27. IMURAN [Concomitant]

REACTIONS (4)
  - Liver disorder [None]
  - Hypomagnesaemia [None]
  - Alanine aminotransferase increased [None]
  - Cytomegalovirus infection [None]
